FAERS Safety Report 13362166 (Version 1)
Quarter: 2017Q1

REPORT INFORMATION
  Report Type: Spontaneous
  Country: US (occurrence: US)
  Receive Date: 20170321
  Receipt Date: 20170321
  Transmission Date: 20170429
  Serious: No
  Sender: FDA-Public Use
  Company Number: None

PATIENT
  Sex: Male

DRUGS (1)
  1. CAPECITABINE 500 MG ACCORD [Suspect]
     Active Substance: CAPECITABINE
     Indication: COLON CANCER
     Dosage: 1500 MG BID FOR 14 DAYS ON, 7 DAYS OFF PO
     Route: 048
     Dates: start: 20160816, end: 20170319

REACTIONS (2)
  - Skin fissures [None]
  - Skin exfoliation [None]
